FAERS Safety Report 7399567-3 (Version None)
Quarter: 2011Q2

REPORT INFORMATION
  Report Type: 
  Country: None (occurrence: None)
  Receive Date: 20110407
  Receipt Date: 20110303
  Transmission Date: 20111010
  Serious: Yes (Hospitalization)
  Sender: FDA-Public Use
  Company Number: US-BAYER-201038257NA

PATIENT
  Sex: Female
  Weight: 91 kg

DRUGS (22)
  1. POTASSIUM [Concomitant]
  2. DEMEROL [Concomitant]
  3. DARVOCET [Concomitant]
     Dosage: UNK UNK, PRN
  4. DIURETICS [Concomitant]
  5. YASMIN [Suspect]
     Indication: CONTRACEPTION
  6. MOTRIN [Concomitant]
  7. MULTI-VITAMIN [Concomitant]
     Indication: VITAMIN SUPPLEMENTATION
  8. I.V. SOLUTIONS [Concomitant]
  9. OCELLA [Suspect]
     Indication: ACNE
     Dosage: UNK
     Dates: start: 20050101, end: 20090101
  10. BLOOD PRESSURE MEDICATION (NOS) [Concomitant]
  11. PHENERGAN [Concomitant]
  12. OCELLA [Suspect]
     Indication: CONTRACEPTION
  13. HEPARIN [Concomitant]
  14. ANTIBIOTICS [Concomitant]
  15. LORTAB [Concomitant]
  16. VICODIN [Concomitant]
  17. ADVIL [IBUPROFEN] [Concomitant]
  18. LEVAQUIN [Concomitant]
  19. YASMIN [Suspect]
     Indication: ACNE
     Dosage: UNK
     Dates: start: 20050101, end: 20090101
  20. YAZ [Suspect]
     Indication: ACNE
  21. PRILOSEC [Concomitant]
     Indication: GASTROOESOPHAGEAL REFLUX DISEASE
  22. WELCHOL [Concomitant]
     Indication: GASTROINTESTINAL DISORDER
     Dosage: UNK

REACTIONS (4)
  - ABDOMINAL PAIN UPPER [None]
  - BILE DUCT STONE [None]
  - CHOLECYSTITIS CHRONIC [None]
  - CHOLELITHIASIS [None]
